FAERS Safety Report 25163772 (Version 1)
Quarter: 2025Q2

REPORT INFORMATION
  Report Type: Spontaneous
  Country: GB (occurrence: GB)
  Receive Date: 20250405
  Receipt Date: 20250405
  Transmission Date: 20250717
  Serious: Yes (Other)
  Sender: CELLTRION
  Company Number: None

PATIENT

DRUGS (2)
  1. YUFLYMA [Suspect]
     Active Substance: ADALIMUMAB-AATY
     Indication: Psoriasis
     Dates: start: 20250106
  2. YUFLYMA [Suspect]
     Active Substance: ADALIMUMAB-AATY
     Dosage: 40 MG EVERY OTHER WEEK (MAINTENANCE DOSE)
     Route: 058

REACTIONS (2)
  - Deafness bilateral [Recovering/Resolving]
  - Sudden hearing loss [Unknown]

NARRATIVE: CASE EVENT DATE: 20250317
